FAERS Safety Report 6976251-9 (Version None)
Quarter: 2010Q3

REPORT INFORMATION
  Report Type: 
  Country: None (occurrence: None)
  Receive Date: 20100910
  Receipt Date: 20100831
  Transmission Date: 20110219
  Serious: Yes (Hospitalization, Other)
  Sender: FDA-Public Use
  Company Number: CA-JNJFOC-20100704403

PATIENT
  Sex: Female
  Weight: 55 kg

DRUGS (13)
  1. INFLIXIMAB, RECOMBINANT [Suspect]
     Indication: CROHN'S DISEASE
     Route: 042
  2. INFLIXIMAB, RECOMBINANT [Suspect]
     Route: 042
  3. ASPIRIN [Concomitant]
     Route: 048
  4. LIPITOR [Concomitant]
     Route: 048
  5. PLAVIX [Concomitant]
     Route: 048
  6. METOPROLOL TARTRATE [Concomitant]
     Route: 048
  7. PANTOPRAZOLE [Concomitant]
  8. MORPHINE [Concomitant]
  9. ATORVASTATIN [Concomitant]
  10. IMURAN [Concomitant]
     Route: 048
  11. OMEPRAZOLE [Concomitant]
  12. RAMIPRIL [Concomitant]
  13. WARFARIN [Concomitant]

REACTIONS (1)
  - MYOCARDIAL INFARCTION [None]
